FAERS Safety Report 5017280-4 (Version None)
Quarter: 2006Q2

REPORT INFORMATION
  Report Type: 
  Country: None (occurrence: None)
  Receive Date: 20060602
  Receipt Date: 20051124
  Transmission Date: 20061013
  Serious: Yes (Disabling)
  Sender: FDA-Public Use
  Company Number: AU-MERCK-0511AUS00406

PATIENT
  Age: 58 Year
  Sex: Female

DRUGS (4)
  1. FOSAMAX [Suspect]
     Indication: OSTEOPOROSIS
     Route: 048
     Dates: start: 20030101
  2. SULFAMETHOXAZOLE AND TRIMETHOPRIM [Concomitant]
     Route: 065
  3. GABAPENTIN [Concomitant]
     Route: 065
  4. AMITRIPTYLINE HYDROCHLORIDE [Concomitant]
     Route: 065

REACTIONS (3)
  - INCORRECT DOSE ADMINISTERED [None]
  - OSTEONECROSIS [None]
  - PAIN IN JAW [None]
